FAERS Safety Report 6795227-8 (Version None)
Quarter: 2010Q2

REPORT INFORMATION
  Report Type: 
  Country: None (occurrence: None)
  Receive Date: 20100625
  Receipt Date: 20100618
  Transmission Date: 20101027
  Serious: Yes (Other)
  Sender: FDA-Public Use
  Company Number: FR-SANOFI-AVENTIS-2010SA035728

PATIENT
  Sex: Female

DRUGS (2)
  1. ZOLPIDEM [Suspect]
     Indication: INSOMNIA
     Route: 048
     Dates: start: 20100603
  2. ZOLPIDEM [Suspect]
     Route: 048

REACTIONS (4)
  - FALL [None]
  - FOOT FRACTURE [None]
  - HAEMATOMA [None]
  - LOSS OF CONSCIOUSNESS [None]
